FAERS Safety Report 5802591-2 (Version None)
Quarter: 2008Q3

REPORT INFORMATION
  Report Type: 
  Country: None (occurrence: None)
  Receive Date: 20080708
  Receipt Date: 20080624
  Transmission Date: 20090109
  Serious: Yes (Hospitalization, Other)
  Sender: FDA-Public Use
  Company Number: FR-ELI_LILLY_AND_COMPANY-FR200805005044

PATIENT
  Age: 69 Year
  Sex: Female

DRUGS (1)
  1. FORTEO [Suspect]
     Indication: OSTEOPOROSIS
     Dosage: 20 UG, DAILY (1/D)
     Route: 058
     Dates: start: 20070920, end: 20080615

REACTIONS (5)
  - ABDOMINAL MASS [None]
  - ABSCESS [None]
  - ACUTE PULMONARY OEDEMA [None]
  - HAEMATOMA [None]
  - SMALL INTESTINAL PERFORATION [None]
